FAERS Safety Report 17291846 (Version 1)
Quarter: 2020Q1

REPORT INFORMATION
  Report Type: Spontaneous
  Country: US (occurrence: US)
  Receive Date: 20200118
  Receipt Date: 20200118
  Transmission Date: 20200409
  Serious: Yes (Disabling)
  Sender: FDA-Public Use
  Company Number: None

PATIENT
  Age: 69 Year
  Sex: Male
  Weight: 89.1 kg

DRUGS (8)
  1. DOXYCYCLINE 100 [Concomitant]
     Active Substance: DOXYCYCLINE
  2. ATENOLOL 25 [Concomitant]
     Active Substance: ATENOLOL
  3. OXYCODONE HCL 10MG [Suspect]
     Active Substance: OXYCODONE HYDROCHLORIDE
     Indication: PAIN
     Dosage: ?          QUANTITY:1 TABLET(S);?
     Route: 048
     Dates: start: 20200112
  4. TEMAZEPAM 30 [Concomitant]
  5. VITAMIN D3 [Concomitant]
     Active Substance: CHOLECALCIFEROL
  6. ELIQUIS [Concomitant]
     Active Substance: APIXABAN
  7. OXYCOCONE 10MG [Concomitant]
  8. CETIRIZINE [Concomitant]
     Active Substance: CETIRIZINE HYDROCHLORIDE

REACTIONS (5)
  - Product substitution issue [None]
  - Headache [None]
  - Diarrhoea [None]
  - Abdominal discomfort [None]
  - Product formulation issue [None]

NARRATIVE: CASE EVENT DATE: 20200112
